FAERS Safety Report 16519383 (Version 1)
Quarter: 2019Q3

REPORT INFORMATION
  Report Type: Spontaneous
  Country: IT (occurrence: IT)
  Receive Date: 20190702
  Receipt Date: 20190702
  Transmission Date: 20191004
  Serious: Yes (Other)
  Sender: FDA-Public Use
  Company Number: IT-MYLANLABS-2019M1061596

PATIENT
  Sex: Male

DRUGS (13)
  1. VIGABATRIN. [Concomitant]
     Active Substance: VIGABATRIN
     Indication: EPILEPSY
     Dosage: UNKNOWN DAYS
  2. QUINIDINE [Concomitant]
     Active Substance: QUINIDINE
     Indication: PARTIAL SEIZURES
     Dosage: 58 MG/KG, 4X/DAY (QID)
  3. LEVETIRACETAM. [Suspect]
     Active Substance: LEVETIRACETAM
     Indication: PARTIAL SEIZURES
     Dosage: UNKNOWN DOSE
  4. CARBAMAZEPINE. [Suspect]
     Active Substance: CARBAMAZEPINE
     Indication: PARTIAL SEIZURES
     Dosage: UNKNOWN DOSE
  5. PHENYTOIN. [Suspect]
     Active Substance: PHENYTOIN
     Indication: PARTIAL SEIZURES
     Dosage: UNKNWON DOSE
  6. CANNABIDIOL [Concomitant]
     Active Substance: CANNABIDIOL
     Indication: PRODUCT USED FOR UNKNOWN INDICATION
     Dosage: 15 MG/KG/DAY
  7. LAMOTRIGINE. [Concomitant]
     Active Substance: LAMOTRIGINE
     Indication: EPILEPSY
     Dosage: UNKNOWN DAYS
  8. PYRIDOXINE [Suspect]
     Active Substance: PYRIDOXINE
     Indication: PARTIAL SEIZURES
     Dosage: UNKNWON DOSE
  9. ADRENOCORTICOTROPHIC HORMONE [Concomitant]
     Active Substance: CORTICOTROPIN
     Indication: EPILEPSY
     Dosage: UNKNOWN DOSE
  10. VALPROIC ACID. [Concomitant]
     Active Substance: VALPROIC ACID
     Indication: EPILEPSY
     Dosage: UNKNOWN DOSE
  11. CLONAZEPAM. [Concomitant]
     Active Substance: CLONAZEPAM
     Indication: EPILEPSY
     Dosage: UNKNOWN DAYS
  12. PHENOBARBITAL. [Suspect]
     Active Substance: PHENOBARBITAL
     Indication: PARTIAL SEIZURES
     Dosage: UNKNOWN DOSE
  13. NITRAZEPAM [Concomitant]
     Active Substance: NITRAZEPAM
     Indication: EPILEPSY
     Dosage: UNKNOWN DOSE

REACTIONS (3)
  - Off label use [Unknown]
  - Seizure [Recovering/Resolving]
  - Multiple-drug resistance [Unknown]
